FAERS Safety Report 9197746 (Version 2)
Quarter: 2013Q2

REPORT INFORMATION
  Report Type: Spontaneous
  Country: TR (occurrence: TR)
  Receive Date: 20130328
  Receipt Date: 20130417
  Transmission Date: 20140414
  Serious: Yes (Hospitalization)
  Sender: FDA-Public Use
  Company Number: TR-ABBOTT-13P-161-1066678-00

PATIENT
  Age: 43 Year
  Sex: Male
  Weight: 97 kg

DRUGS (1)
  1. HUMIRA [Suspect]
     Indication: ANKYLOSING SPONDYLITIS
     Route: 058
     Dates: start: 20121105

REACTIONS (3)
  - Cerebellar artery occlusion [Recovered/Resolved]
  - Epilepsy [Recovered/Resolved]
  - Headache [Recovered/Resolved]
